FAERS Safety Report 21390883 (Version 6)
Quarter: 2022Q4

REPORT INFORMATION
  Report Type: Report from Study
  Country: TH (occurrence: TH)
  Receive Date: 20220929
  Receipt Date: 20221110
  Transmission Date: 20230112
  Serious: Yes (Other)
  Sender: FDA-Public Use
  Company Number: TH-NOVARTISPH-NVSC2022TH094742

PATIENT
  Age: 60 Year
  Sex: Female

DRUGS (2)
  1. KISQALI [Suspect]
     Active Substance: RIBOCICLIB
     Indication: Breast cancer metastatic
     Dosage: UNK (2 X 1 MORNING, TAKE 3 WEEKS AND OFF 1 WEEK, SHOULD TAKE AT THE SAME TIME EVERYDAY)
     Route: 048
     Dates: start: 20220504
  2. DICLOFENAC SODIUM [Suspect]
     Active Substance: DICLOFENAC SODIUM
     Indication: Product used for unknown indication
     Dosage: UNK
     Route: 065

REACTIONS (6)
  - Carcinoembryonic antigen increased [Recovered/Resolved]
  - Carbohydrate antigen 15-3 increased [Recovered/Resolved]
  - Chest discomfort [Unknown]
  - Nausea [Unknown]
  - Rash [Unknown]
  - Drug hypersensitivity [Unknown]

NARRATIVE: CASE EVENT DATE: 20220921
